FAERS Safety Report 9281021 (Version 1)
Quarter: 2013Q2

REPORT INFORMATION
  Report Type: Spontaneous
  Country: US (occurrence: US)
  Receive Date: 20130509
  Receipt Date: 20130509
  Transmission Date: 20140414
  Serious: Yes (Death)
  Sender: FDA-Public Use
  Company Number: US-GLAXOSMITHKLINE-A1022832A

PATIENT
  Sex: Male

DRUGS (2)
  1. VOTRIENT [Suspect]
     Indication: SMALL INTESTINE CARCINOMA
     Dosage: 200MG UNKNOWN
     Route: 065
  2. STIVARGA [Suspect]
     Indication: SMALL INTESTINE CARCINOMA
     Dosage: 160MG PER DAY
     Route: 048
     Dates: start: 20121211

REACTIONS (1)
  - Death [Fatal]
